FAERS Safety Report 11061345 (Version 1)
Quarter: 2015Q2

REPORT INFORMATION
  Report Type: Spontaneous
  Country: AU (occurrence: AU)
  Receive Date: 20150424
  Receipt Date: 20150424
  Transmission Date: 20150821
  Serious: Yes (Hospitalization, Other)
  Sender: FDA-Public Use
  Company Number: AU-ACTELION-A-CH2015-116291

PATIENT
  Sex: Male

DRUGS (1)
  1. OPSUMIT [Suspect]
     Active Substance: MACITENTAN
     Indication: PULMONARY ARTERIAL HYPERTENSION
     Route: 048

REACTIONS (7)
  - Pyrexia [Unknown]
  - Chills [Unknown]
  - Gamma-glutamyltransferase increased [Unknown]
  - Jaundice [Unknown]
  - Cholestasis [Unknown]
  - Hyperbilirubinaemia [Unknown]
  - Sepsis [Unknown]
